FAERS Safety Report 4802652-0 (Version None)
Quarter: 2005Q4

REPORT INFORMATION
  Report Type: 
  Country: None (occurrence: None)
  Receive Date: 20051014
  Receipt Date: 20050808
  Transmission Date: 20060501
  Serious: Yes (Other)
  Sender: FDA-Public Use
  Company Number: 2005086764

PATIENT
  Age: 74 Year
  Sex: Female
  Weight: 58.9676 kg

DRUGS (9)
  1. NEURONTIN [Suspect]
     Indication: NEURALGIA
     Dosage: 600MG (600MG 1 IN 1 D) ORAL
     Route: 048
     Dates: start: 20050509, end: 20050611
  2. NEURONTIN [Suspect]
     Indication: POST HERPETIC NEURALGIA
     Dosage: 600MG (600MG 1 IN 1 D) ORAL
     Route: 048
     Dates: start: 20050509, end: 20050611
  3. DARVOCET [Suspect]
     Indication: BACK PAIN
     Dosage: ORAL
     Route: 048
     Dates: start: 20050428, end: 20050608
  4. CARDIZEM CD [Concomitant]
  5. HYDROCHLOROTHIAZIDE [Concomitant]
  6. NIASPAN [Concomitant]
  7. MULTIVITAMIN [Concomitant]
  8. CALCIUM (CALCIUM) [Concomitant]
  9. ASPIRIN [Concomitant]

REACTIONS (4)
  - BACK PAIN [None]
  - DRUG INEFFECTIVE [None]
  - HERPES ZOSTER [None]
  - LIVER FUNCTION TEST ABNORMAL [None]
